FAERS Safety Report 10184792 (Version 1)
Quarter: 2014Q2

REPORT INFORMATION
  Report Type: Spontaneous
  Country: US (occurrence: US)
  Receive Date: 20140521
  Receipt Date: 20140521
  Transmission Date: 20141212
  Serious: Yes (Death)
  Sender: FDA-Public Use
  Company Number: US-ROCHE-1404899

PATIENT
  Sex: Female
  Weight: 70.82 kg

DRUGS (7)
  1. XELODA [Suspect]
     Indication: PRODUCT USED FOR UNKNOWN INDICATION
     Dosage: 14 DAYS ON, 7 DAYS OFF
     Route: 065
     Dates: start: 20131108
  2. LOSARTAN [Concomitant]
     Indication: HYPERTENSION
     Dosage: 100/12.5 MG
     Route: 048
  3. AMLODIPINE [Concomitant]
     Indication: HYPERTENSION
     Route: 048
  4. PANTOPRAZOLE [Concomitant]
     Indication: GASTROOESOPHAGEAL REFLUX DISEASE
     Route: 048
  5. METAXALONE [Concomitant]
     Indication: MUSCLE SPASMS
     Dosage: PRN
     Route: 048
  6. METAXALONE [Concomitant]
     Indication: INFLAMMATION
  7. FISH OIL [Concomitant]
     Route: 048

REACTIONS (1)
  - Death [Fatal]
